FAERS Safety Report 5142677-1 (Version None)
Quarter: 2006Q4

REPORT INFORMATION
  Report Type: 
  Country: None (occurrence: None)
  Receive Date: 20061027
  Receipt Date: 20061016
  Transmission Date: 20070319
  Serious: Yes (Hospitalization, Other)
  Sender: FDA-Public Use
  Company Number: T200601094

PATIENT
  Age: 71 Year
  Sex: Female

DRUGS (7)
  1. OPTIRAY 160 [Suspect]
     Indication: COMPUTERISED TOMOGRAM HEAD
     Dosage: 100 ML, SINGLE, INTRAVENOUS
     Route: 042
     Dates: start: 20060828, end: 20060828
  2. DARVOCET-N 100 [Concomitant]
  3. FOSAMAX [Concomitant]
  4. ASPIRIN [Concomitant]
  5. PLAVIX [Concomitant]
  6. LOPRESSOR [Concomitant]
  7. PRAVACHOL [Concomitant]

REACTIONS (4)
  - HYPOTENSION [None]
  - OEDEMA [None]
  - THROAT TIGHTNESS [None]
  - VOMITING [None]
